FAERS Safety Report 9229006 (Version 4)
Quarter: 2013Q2

REPORT INFORMATION
  Report Type: Report from Study
  Country: CH (occurrence: CH)
  Receive Date: 20130412
  Receipt Date: 20130625
  Transmission Date: 20140414
  Serious: Yes (Other)
  Sender: FDA-Public Use
  Company Number: CH-CELGENEUS-151-C5013-13040506

PATIENT
  Age: 90 Year
  Sex: Female
  Weight: 57 kg

DRUGS (19)
  1. CC-5013 [Suspect]
     Indication: PLASMA CELL MYELOMA
     Route: 048
     Dates: start: 20101116
  2. CC-5013 [Suspect]
     Route: 048
     Dates: start: 20120430, end: 20120527
  3. DEXAMETHASONE [Suspect]
     Indication: PLASMA CELL MYELOMA
     Route: 065
     Dates: start: 20101116
  4. DEXAMETHASONE [Suspect]
     Route: 065
     Dates: end: 20120527
  5. TORASEMID [Concomitant]
     Indication: OEDEMA PERIPHERAL
     Route: 048
     Dates: start: 20101213
  6. ATENOLOL [Concomitant]
     Indication: HYPERTENSION
     Dosage: 50 MILLIGRAM
     Route: 048
     Dates: start: 20101013
  7. BONVIVA [Concomitant]
     Indication: OSTEOPOROSIS
     Route: 048
     Dates: start: 20101013
  8. METOZALON [Concomitant]
     Indication: OEDEMA PERIPHERAL
     Dosage: 2.5 MILLIGRAM
     Route: 048
     Dates: start: 20110307
  9. MAGNESIOCARD [Concomitant]
     Indication: ATRIAL FIBRILLATION
     Dosage: 7.5 MILLIGRAM
     Route: 048
     Dates: start: 201103
  10. CALCIMAGON D3 [Concomitant]
     Indication: OSTEOPOROSIS
     Dosage: 500 MILLIGRAM
     Route: 048
     Dates: start: 201103
  11. NEXIUM [Concomitant]
     Indication: PROPHYLAXIS
     Dosage: 20 MILLIGRAM
     Route: 048
     Dates: start: 20101116
  12. PARACETAMOL [Concomitant]
     Indication: BONE PAIN
     Route: 048
     Dates: start: 20101016
  13. DEQUONAL [Concomitant]
     Indication: DRY MOUTH
     Route: 002
     Dates: start: 20101227
  14. PRIMPERAN [Concomitant]
     Indication: PROPHYLAXIS
     Route: 048
     Dates: start: 20110324
  15. ALLOPURINOL [Concomitant]
     Indication: RENAL FAILURE
     Dosage: 100 MILLIGRAM
     Route: 048
     Dates: start: 20110328
  16. CALCIUMACETAT [Concomitant]
     Indication: RENAL FAILURE
     Route: 048
     Dates: start: 20110328
  17. ACETYLSALICYLIC ACID [Concomitant]
     Indication: THROMBOSIS PROPHYLAXIS
     Dosage: 100 MILLIGRAM
     Route: 048
     Dates: start: 20110708
  18. LISINOPRIL [Concomitant]
     Indication: ATRIAL FIBRILLATION
     Dosage: 1.25 MILLIGRAM
     Route: 048
     Dates: start: 20110708
  19. ANAEMODORON [Concomitant]
     Indication: ANAEMIA
     Route: 048
     Dates: start: 20120123

REACTIONS (1)
  - Basal cell carcinoma [Recovered/Resolved]
